FAERS Safety Report 8506935-2 (Version None)
Quarter: 2012Q3

REPORT INFORMATION
  Report Type: 
  Country: None (occurrence: None)
  Receive Date: 20120712
  Receipt Date: 20120704
  Transmission Date: 20120928
  Serious: Yes (Other)
  Sender: FDA-Public Use
  Company Number: CO-JNJFOC-20120705579

PATIENT
  Age: 32 Year
  Sex: Male

DRUGS (2)
  1. XARELTO [Suspect]
     Indication: CEREBROVASCULAR ACCIDENT PROPHYLAXIS
     Route: 048
     Dates: start: 20120616
  2. XARELTO [Suspect]
     Route: 048
     Dates: start: 20120518

REACTIONS (3)
  - ANURIA [None]
  - CHROMATURIA [None]
  - BLOOD URINE PRESENT [None]
